FAERS Safety Report 7581601-9 (Version None)
Quarter: 2011Q2

REPORT INFORMATION
  Report Type: 
  Country: None (occurrence: None)
  Receive Date: 20110629
  Receipt Date: 20110629
  Transmission Date: 20111010
  Serious: Yes (Hospitalization)
  Sender: FDA-Public Use
  Company Number: PHHO2011RU06320

PATIENT
  Sex: Male
  Weight: 23.5 kg

DRUGS (1)
  1. TOBRAMYCIN [Suspect]
     Indication: CYSTIC FIBROSIS
     Dosage: PLACEBO
     Route: 048
     Dates: start: 20110310

REACTIONS (2)
  - LOWER LIMB FRACTURE [None]
  - INJURY [None]
